FAERS Safety Report 6543053-7 (Version None)
Quarter: 2010Q1

REPORT INFORMATION
  Report Type: 
  Country: None (occurrence: None)
  Receive Date: 20100114
  Receipt Date: 20091216
  Transmission Date: 20100710
  Serious: Yes (Hospitalization)
  Sender: FDA-Public Use
  Company Number: 1000009967

PATIENT
  Age: 61 Year
  Sex: Female
  Weight: 70 kg

DRUGS (11)
  1. MEMANTINE HCL [Suspect]
     Indication: DEMENTIA ALZHEIMER'S TYPE
     Dosage: 20 MG, ORAL; 5 MG, ORAL; 10 MG, ORAL; 15 MG, ORAL
     Route: 048
     Dates: start: 20090703, end: 20090709
  2. MEMANTINE HCL [Suspect]
     Indication: DEMENTIA ALZHEIMER'S TYPE
     Dosage: 20 MG, ORAL; 5 MG, ORAL; 10 MG, ORAL; 15 MG, ORAL
     Route: 048
     Dates: start: 20090710, end: 20090716
  3. MEMANTINE HCL [Suspect]
     Indication: DEMENTIA ALZHEIMER'S TYPE
     Dosage: 20 MG, ORAL; 5 MG, ORAL; 10 MG, ORAL; 15 MG, ORAL
     Route: 048
     Dates: start: 20090717, end: 20090723
  4. MEMANTINE HCL [Suspect]
     Indication: DEMENTIA ALZHEIMER'S TYPE
     Dosage: 20 MG, ORAL; 5 MG, ORAL; 10 MG, ORAL; 15 MG, ORAL
     Route: 048
     Dates: start: 20090724, end: 20090923
  5. BISOPROLOL FUMARATE [Concomitant]
  6. CITALOPRAM [Concomitant]
  7. ARICEPT [Concomitant]
  8. PANTOPRAZOL (20 MILLIGRAM) [Concomitant]
  9. ACICLOVIR (800 MILLIGRAM) [Concomitant]
  10. VOLTAREN [Concomitant]
  11. ANAESTHESULF [Concomitant]

REACTIONS (9)
  - AGITATION [None]
  - DEHYDRATION [None]
  - DRUG INEFFECTIVE [None]
  - GASTROINTESTINAL INFECTION [None]
  - HYPERTENSION [None]
  - HYPERTENSIVE CRISIS [None]
  - NAUSEA [None]
  - SINUS BRADYCARDIA [None]
  - VOMITING [None]
